FAERS Safety Report 4949158-6 (Version None)
Quarter: 2006Q1

REPORT INFORMATION
  Report Type: 
  Country: None (occurrence: None)
  Receive Date: 20060321
  Receipt Date: 20050928
  Transmission Date: 20060701
  Serious: Yes (Hospitalization, Other)
  Sender: FDA-Public Use
  Company Number: US-MERCK-0509USA04534

PATIENT
  Age: 56 Year
  Sex: Female

DRUGS (7)
  1. VIOXX [Suspect]
     Route: 048
  2. ACIPHEX [Concomitant]
     Route: 048
  3. ESTRADERM [Concomitant]
     Route: 061
  4. COLESTID [Concomitant]
     Route: 048
  5. PROZAC [Concomitant]
     Route: 048
  6. METAMUCIL [Concomitant]
     Route: 048
  7. IMODIUM [Concomitant]
     Route: 048

REACTIONS (4)
  - CHEST PAIN [None]
  - GASTROOESOPHAGEAL REFLUX DISEASE [None]
  - MYOCARDIAL INFARCTION [None]
  - SPINAL DISORDER [None]
